FAERS Safety Report 23474220 (Version 1)
Quarter: 2024Q1

REPORT INFORMATION
  Report Type: Spontaneous
  Country: JP (occurrence: JP)
  Receive Date: 20240204
  Receipt Date: 20240204
  Transmission Date: 20240409
  Serious: Yes (Death, Other)
  Sender: FDA-Public Use
  Company Number: JP-TAKEDA-2022TJP078215

PATIENT
  Age: 66 Year
  Sex: Male
  Weight: 59 kg

DRUGS (8)
  1. CABOMETYX [Suspect]
     Active Substance: CABOZANTINIB S-MALATE
     Indication: Renal cell carcinoma
     Dosage: 20 MG, QD
     Route: 048
     Dates: start: 20220107
  2. CABOMETYX [Suspect]
     Active Substance: CABOZANTINIB S-MALATE
     Dosage: UNK
     Route: 048
     Dates: end: 20221020
  3. HYDROMORPHONE HYDROCHLORIDE [Concomitant]
     Active Substance: HYDROMORPHONE HYDROCHLORIDE
     Indication: Renal cell carcinoma
     Dosage: 16 MILLIGRAM, QD
     Route: 048
     Dates: start: 20210312, end: 20221020
  4. CALONAL [Concomitant]
     Active Substance: ACETAMINOPHEN
     Indication: Renal cell carcinoma
     Dosage: 2000 MILLIGRAM, QID
     Route: 048
     Dates: start: 20210308, end: 20221020
  5. SYMPROIC [Concomitant]
     Active Substance: NALDEMEDINE
     Indication: Constipation
     Dosage: 0.2 MILLIGRAM, QD
     Route: 048
     Dates: start: 20210312, end: 20221020
  6. MAGNESIUM OXIDE [Concomitant]
     Active Substance: MAGNESIUM OXIDE
     Indication: Constipation
     Dosage: 330 MILLIGRAM, BID
     Route: 048
     Dates: start: 20210511, end: 20221020
  7. PRIMPERAN [Concomitant]
     Active Substance: METOCLOPRAMIDE HYDROCHLORIDE
     Indication: Nausea
     Dosage: 5 MILLIGRAM, QD
     Route: 048
     Dates: start: 20221004, end: 20221020
  8. ONEALFA [Concomitant]
     Active Substance: ALFACALCIDOL
     Indication: Hypoparathyroidism
     Dosage: 0.25 MICROGRAM, QD
     Route: 048
     Dates: start: 20220628, end: 20221020

REACTIONS (6)
  - Renal cell carcinoma [Fatal]
  - Oxygen saturation decreased [Not Recovered/Not Resolved]
  - Decreased appetite [Recovering/Resolving]
  - Hypocalcaemia [Recovering/Resolving]
  - Proteinuria [Recovering/Resolving]
  - Stomatitis [Recovering/Resolving]

NARRATIVE: CASE EVENT DATE: 20220217
